FAERS Safety Report 7068188-4 (Version None)
Quarter: 2010Q4

REPORT INFORMATION
  Report Type: 
  Country: None (occurrence: None)
  Receive Date: 20101027
  Receipt Date: 20101027
  Transmission Date: 20110411
  Serious: Yes (Hospitalization)
  Sender: FDA-Public Use
  Company Number: None

PATIENT
  Age: 74 Year
  Sex: Female
  Weight: 60.3284 kg

DRUGS (9)
  1. FOSAMAX [Suspect]
     Indication: OSTEOPENIA
     Dosage: 70 MG ONCE A WEEK PO
     Route: 048
     Dates: start: 20030101, end: 20100727
  2. FOSAMAX [Suspect]
     Indication: OSTEOPOROSIS
     Dosage: 70 MG ONCE A WEEK PO
     Route: 048
     Dates: start: 20030101, end: 20100727
  3. AMYTRIPTILINE [Concomitant]
  4. NIFEDIPINE [Concomitant]
  5. LABETALOL HCL [Concomitant]
  6. LOVASTATIN [Concomitant]
  7. LEVOXYL [Concomitant]
  8. BENICAR [Concomitant]
  9. COUMADIN [Concomitant]

REACTIONS (6)
  - BONE PAIN [None]
  - FALL [None]
  - FEMUR FRACTURE [None]
  - MUSCULAR WEAKNESS [None]
  - PAIN IN EXTREMITY [None]
  - THROMBOSIS [None]
